FAERS Safety Report 6861999-7 (Version None)
Quarter: 2010Q3

REPORT INFORMATION
  Report Type: 
  Country: None (occurrence: None)
  Receive Date: 20100720
  Receipt Date: 20100720
  Transmission Date: 20110219
  Serious: No
  Sender: FDA-Public Use
  Company Number: None

PATIENT
  Age: 51 Year
  Sex: Male

DRUGS (4)
  1. CLONAZEPAM [Suspect]
     Indication: ANXIETY
     Dosage: 0.5 MG ONCE-TWICE BID PO
     Route: 048
     Dates: start: 20030101
  2. CLONAZEPAM [Suspect]
     Indication: PANIC REACTION
     Dosage: 0.5 MG ONCE-TWICE BID PO
     Route: 048
     Dates: start: 20030101
  3. CLONAZEPAM [Suspect]
     Indication: ANXIETY
     Dosage: 0.5 MG ONCE-TWICE BID PO
     Route: 048
     Dates: start: 20050101
  4. CLONAZEPAM [Suspect]
     Indication: PANIC REACTION
     Dosage: 0.5 MG ONCE-TWICE BID PO
     Route: 048
     Dates: start: 20050101

REACTIONS (2)
  - ANXIETY [None]
  - CONDITION AGGRAVATED [None]
